FAERS Safety Report 17165942 (Version 1)
Quarter: 2019Q4

REPORT INFORMATION
  Report Type: Spontaneous
  Country: IT (occurrence: IT)
  Receive Date: 20191217
  Receipt Date: 20191217
  Transmission Date: 20200122
  Serious: Yes (Hospitalization, Other)
  Sender: FDA-Public Use
  Company Number: IT-B.I. PHARMACEUTICALS,INC./RIDGEFIELD-2019-BI-119512

PATIENT
  Age: 82 Year
  Sex: Female
  Weight: 80 kg

DRUGS (5)
  1. CORTISONE [Concomitant]
     Active Substance: CORTISONE
     Indication: CHRONIC OBSTRUCTIVE PULMONARY DISEASE
     Route: 065
  2. ASA [Concomitant]
     Active Substance: ASPIRIN
     Indication: THROMBOSIS
     Route: 065
  3. AMIODARONE [Concomitant]
     Active Substance: AMIODARONE
     Indication: SINUS RHYTHM
     Route: 042
  4. PRADAXA [Suspect]
     Active Substance: DABIGATRAN ETEXILATE MESYLATE
     Indication: THROMBOSIS
     Route: 065
  5. CLOPIDOGREL [Concomitant]
     Active Substance: CLOPIDOGREL BISULFATE
     Indication: THROMBOSIS
     Route: 065

REACTIONS (2)
  - Bronchitis [Unknown]
  - Diverticulitis [Unknown]
